FAERS Safety Report 10639773 (Version 2)
Quarter: 2014Q4

REPORT INFORMATION
  Report Type: Spontaneous
  Country: US (occurrence: US)
  Receive Date: 20141209
  Receipt Date: 20141225
  Transmission Date: 20150529
  Serious: No
  Sender: FDA-Public Use
  Company Number: US-AMGEN INC.-USASL2014094219

PATIENT
  Age: 29 Year
  Sex: Female
  Weight: 65.31 kg

DRUGS (2)
  1. ENBREL [Suspect]
     Active Substance: ETANERCEPT
     Dosage: UNK
     Route: 065
  2. ENBREL [Suspect]
     Active Substance: ETANERCEPT
     Indication: PSORIASIS
     Dosage: 50 MG EVERY 72 HOURS
     Route: 058
     Dates: start: 20141107

REACTIONS (9)
  - Injection site urticaria [Recovered/Resolved]
  - Injection site discolouration [Recovered/Resolved]
  - Respiratory tract congestion [Recovering/Resolving]
  - Injection site rash [Recovered/Resolved]
  - Injection site swelling [Recovered/Resolved]
  - Injection site warmth [Recovered/Resolved]
  - Upper respiratory tract infection [Not Recovered/Not Resolved]
  - Injection site pruritus [Recovered/Resolved]
  - Injection site nodule [Recovered/Resolved]

NARRATIVE: CASE EVENT DATE: 20141128
